FAERS Safety Report 5067295-5 (Version None)
Quarter: 2006Q3

REPORT INFORMATION
  Report Type: 
  Country: None (occurrence: None)
  Receive Date: 20060727
  Receipt Date: 20060718
  Transmission Date: 20061208
  Serious: Yes (Other)
  Sender: FDA-Public Use
  Company Number: 2006083617

PATIENT
  Sex: Female

DRUGS (2)
  1. DOSTINEX [Suspect]
     Indication: HYPERPROLACTINAEMIA
     Dosage: SEE IMAGE, ORAL
     Route: 048
     Dates: start: 20040601, end: 20060101
  2. LEVOTHYROXINE SODIUM [Concomitant]

REACTIONS (2)
  - BLOOD PROLACTIN INCREASED [None]
  - HEPATITIS [None]
